FAERS Safety Report 22300214 (Version 1)
Quarter: 2023Q2

REPORT INFORMATION
  Report Type: Spontaneous
  Country: US (occurrence: None)
  Receive Date: 20230508
  Receipt Date: 20230508
  Transmission Date: 20230721
  Serious: Yes (Other)
  Sender: FDA-Public Use
  Company Number: None

PATIENT
  Age: 51 Year
  Sex: Female
  Weight: 72.57 kg

DRUGS (13)
  1. BUTRANS [Suspect]
     Active Substance: BUPRENORPHINE
     Indication: Intervertebral disc protrusion
     Dosage: OTHER QUANTITY : 1 PATCH;?FREQUENCY : WEEKLY;?
     Route: 062
     Dates: start: 2021
  2. BUTRANS [Suspect]
     Active Substance: BUPRENORPHINE
     Indication: Sciatica
  3. CENTRUM VITAMIN [Concomitant]
  4. HAIR, NAILS, SKIN, HAIR VITAMIN [Concomitant]
  5. DICLOFENAC [Concomitant]
     Active Substance: DICLOFENAC
  6. FLONASE [Concomitant]
     Active Substance: FLUTICASONE PROPIONATE
  7. ADVAIR HFA [Concomitant]
     Active Substance: FLUTICASONE PROPIONATE\SALMETEROL XINAFOATE
  8. CETIRIZINE HYDROCHLORIDE [Concomitant]
     Active Substance: CETIRIZINE HYDROCHLORIDE
  9. HORMONE REPLACEMENT THERAPY (FOR MENAPAUSE) [Concomitant]
  10. REBELSUS [Concomitant]
  11. TIZANIDINE [Concomitant]
     Active Substance: TIZANIDINE
  12. ROPINAROLE [Concomitant]
  13. TYLENOL [Concomitant]
     Active Substance: ACETAMINOPHEN

REACTIONS (5)
  - Drug ineffective [None]
  - Product packaging issue [None]
  - Gait inability [None]
  - Feeding disorder [None]
  - Pain [None]

NARRATIVE: CASE EVENT DATE: 20230215
